FAERS Safety Report 19488308 (Version 1)
Quarter: 2021Q3

REPORT INFORMATION
  Report Type: Spontaneous
  Country: PT (occurrence: PT)
  Receive Date: 20210702
  Receipt Date: 20210702
  Transmission Date: 20211014
  Serious: Yes (Hospitalization, Other)
  Sender: FDA-Public Use
  Company Number: PT-009507513-2106PRT007898

PATIENT
  Age: 84 Year
  Sex: Female

DRUGS (1)
  1. PEMBROLIZUMAB. [Suspect]
     Active Substance: PEMBROLIZUMAB
     Indication: MALIGNANT MELANOMA
     Dates: start: 201704

REACTIONS (14)
  - Asthenia [Unknown]
  - Malaise [Unknown]
  - Fatigue [Unknown]
  - Cortisol decreased [Unknown]
  - Lymphocytic hypophysitis [Unknown]
  - Decreased appetite [Unknown]
  - Vomiting [Unknown]
  - Anuria [Unknown]
  - Dehydration [Unknown]
  - Confusional state [Unknown]
  - Dysstasia [Recovered/Resolved]
  - Hyponatraemia [Unknown]
  - Blood corticotrophin decreased [Unknown]
  - Gastroenteritis [Unknown]

NARRATIVE: CASE EVENT DATE: 2018
